FAERS Safety Report 10083300 (Version 2)
Quarter: 2014Q2

REPORT INFORMATION
  Report Type: Spontaneous
  Country: NL (occurrence: NL)
  Receive Date: 20140417
  Receipt Date: 20140417
  Transmission Date: 20141212
  Serious: Yes (Other)
  Sender: FDA-Public Use
  Company Number: NL-ACCORD-023021

PATIENT
  Age: 60 Year
  Sex: Female

DRUGS (2)
  1. FLUOROURACIL [Concomitant]
     Indication: ANAL CANCER
  2. MITOMYCIN-C [Suspect]
     Indication: ANAL CANCER

REACTIONS (1)
  - Pulmonary arterial hypertension [Recovered/Resolved]
